FAERS Safety Report 22292644 (Version 2)
Quarter: 2023Q2

REPORT INFORMATION
  Report Type: Other
  Country: US (occurrence: None)
  Receive Date: 20230508
  Receipt Date: 20230519
  Transmission Date: 20230722
  Serious: Yes (Other)
  Sender: FDA-Public Use
  Company Number: US-ROCHE-3329640

PATIENT
  Age: 58 Year
  Sex: Female

DRUGS (1)
  1. OCREVUS [Suspect]
     Active Substance: OCRELIZUMAB
     Indication: Relapsing multiple sclerosis
     Dosage: INFUSE 300 MG IV, THEN INFUSE 300MG IV IN 14 DAYS, 600MG EVERY 5 MONTHS?LAST DATE OF TREATMENT: 13/O
     Route: 042
     Dates: start: 202109

REACTIONS (6)
  - Rib fracture [Unknown]
  - Therapeutic response decreased [Unknown]
  - Dyspnoea [Unknown]
  - Pain [Unknown]
  - Illness [Unknown]
  - Asthenia [Unknown]
